FAERS Safety Report 12505891 (Version 1)
Quarter: 2016Q2

REPORT INFORMATION
  Report Type: Spontaneous
  Country: US (occurrence: US)
  Receive Date: 20160628
  Receipt Date: 20160628
  Transmission Date: 20160815
  Serious: No
  Sender: FDA-Public Use
  Company Number: US-MYLANLABS-2016M1005806

PATIENT
  Sex: Female

DRUGS (12)
  1. METHOTREXATE [Suspect]
     Active Substance: METHOTREXATE
     Indication: RHEUMATOID ARTHRITIS
     Dosage: 2.5 MG, QW
     Route: 048
  2. FLURBIPROFEN. [Concomitant]
     Active Substance: FLURBIPROFEN
     Indication: ARTHRITIS
     Dosage: 200 MG, QD
     Route: 048
  3. NIFEDIPINE LA [Concomitant]
     Indication: BLOOD PRESSURE MANAGEMENT
     Dosage: 60 MG, QD
     Route: 048
  4. STOOL SOFTENER [Concomitant]
     Active Substance: DOCUSATE CALCIUM
     Indication: BOWEL MOVEMENT IRREGULARITY
     Dosage: ONE CAPSULE BY MOUTH DAILY
     Route: 048
  5. NEXIUM [Suspect]
     Active Substance: ESOMEPRAZOLE MAGNESIUM
     Indication: GASTROOESOPHAGEAL REFLUX DISEASE
     Dosage: 22.3 MG, QD
     Route: 048
     Dates: start: 201511
  6. VITAMIN B12 [Concomitant]
     Active Substance: CYANOCOBALAMIN
     Indication: VITAMIN SUPPLEMENTATION
     Dosage: 1000 MG, QD
     Route: 048
  7. ONE-A-DAY WOMEN^S [Concomitant]
     Active Substance: VITAMINS
     Indication: VITAMIN SUPPLEMENTATION
     Dosage: ONE TABLET BY MOUTH DAILY
     Route: 048
  8. IRON [Concomitant]
     Active Substance: IRON
     Indication: MINERAL SUPPLEMENTATION
     Dosage: ONE PILL BY MOUTH DAILY
     Route: 048
  9. PREDNISONE. [Concomitant]
     Active Substance: PREDNISONE
     Indication: ARTHRITIS
     Dosage: 5 MG, QD
     Route: 048
  10. TYLENOL [Concomitant]
     Active Substance: ACETAMINOPHEN
     Indication: ARTHRITIS
     Dosage: 500 MG, BID
     Route: 048
  11. FOLIC ACID. [Concomitant]
     Active Substance: FOLIC ACID
     Indication: ARTHRITIS
     Dosage: 1 MG, QD
     Route: 048
  12. ATENOLOL. [Concomitant]
     Active Substance: ATENOLOL
     Indication: BLOOD PRESSURE MANAGEMENT
     Dosage: 50 MG, QD
     Route: 048

REACTIONS (2)
  - Throat irritation [Not Recovered/Not Resolved]
  - Cough [Not Recovered/Not Resolved]
